FAERS Safety Report 7789032-3 (Version None)
Quarter: 2011Q3

REPORT INFORMATION
  Report Type: 
  Country: None (occurrence: None)
  Receive Date: 20110930
  Receipt Date: 20110917
  Transmission Date: 20111222
  Serious: Yes (Other)
  Sender: FDA-Public Use
  Company Number: CA-JNJFOC-20110506351

PATIENT
  Sex: Female
  Weight: 104 kg

DRUGS (7)
  1. LORAZEPAM [Concomitant]
     Route: 065
  2. REMICADE [Suspect]
     Route: 042
     Dates: start: 20060101
  3. NAPROXEN [Concomitant]
     Route: 065
  4. ESCITALOPRAM [Concomitant]
     Route: 065
  5. REMICADE [Suspect]
     Indication: CROHN'S DISEASE
     Route: 042
     Dates: start: 20110917
  6. WELLBUTRIN [Concomitant]
     Route: 065
  7. CLONIDINE [Concomitant]
     Route: 065

REACTIONS (1)
  - BIPOLAR DISORDER [None]
